FAERS Safety Report 16335843 (Version 2)
Quarter: 2019Q4

REPORT INFORMATION
  Report Type: Spontaneous
  Country: US (occurrence: US)
  Receive Date: 20190521
  Receipt Date: 20191004
  Transmission Date: 20200122
  Serious: Yes (Hospitalization, Other)
  Sender: FDA-Public Use
  Company Number: US-SA-2019SA134153

PATIENT
  Age: 4 Year
  Sex: Female

DRUGS (3)
  1. CEREZYME [Suspect]
     Active Substance: IMIGLUCERASE
     Indication: GAUCHER^S DISEASE
     Dosage: 750 U, QOW
     Route: 042
     Dates: start: 20160926
  2. CEREZYME [Suspect]
     Active Substance: IMIGLUCERASE
     Dosage: 750 U, QW
     Route: 042
  3. CEREZYME [Suspect]
     Active Substance: IMIGLUCERASE
     Dosage: 750 U, QW
     Route: 042
     Dates: start: 2016

REACTIONS (2)
  - Pyrexia [Unknown]
  - Pneumonia [Unknown]
